FAERS Safety Report 15064799 (Version 2)
Quarter: 2019Q1

REPORT INFORMATION
  Report Type: Spontaneous
  Country: US (occurrence: US)
  Receive Date: 20180626
  Receipt Date: 20190114
  Transmission Date: 20190417
  Serious: No
  Sender: FDA-Public Use
  Company Number: US-SHIRE-US201822465

PATIENT
  Age: 84 Year
  Sex: Female
  Weight: 42.18 kg

DRUGS (2)
  1. GATTEX [Suspect]
     Active Substance: TEDUGLUTIDE\WATER
     Dosage: 2.4 MG, 1X/DAY:QD
     Route: 058
     Dates: start: 20180521
  2. GATTEX [Suspect]
     Active Substance: TEDUGLUTIDE\WATER
     Indication: SHORT-BOWEL SYNDROME
     Dosage: 2.4 MG, 1X/DAY:QD
     Route: 058
     Dates: start: 20180326

REACTIONS (2)
  - Pruritus [Not Recovered/Not Resolved]
  - Inappropriate schedule of product administration [Unknown]

NARRATIVE: CASE EVENT DATE: 20180530
